FAERS Safety Report 20603094 (Version 2)
Quarter: 2022Q2

REPORT INFORMATION
  Report Type: Report from Study
  Country: PL (occurrence: None)
  Receive Date: 20220316
  Receipt Date: 20220406
  Transmission Date: 20220721
  Serious: Yes (Hospitalization)
  Sender: FDA-Public Use
  Company Number: PL-ROCHE-3049393

PATIENT
  Sex: Male
  Weight: 80 kg

DRUGS (1)
  1. OBINUTUZUMAB [Suspect]
     Active Substance: OBINUTUZUMAB
     Indication: Waldenstrom^s macroglobulinaemia
     Dosage: DATE OF LAST DOSE PRIOR TO ADVERSE EVENT WAS 15/DEC/2021
     Route: 042
     Dates: start: 20201016

REACTIONS (1)
  - Multisystem inflammatory syndrome in adults [Recovering/Resolving]

NARRATIVE: CASE EVENT DATE: 20220307
